FAERS Safety Report 5373868-2 (Version None)
Quarter: 2007Q2

REPORT INFORMATION
  Report Type: 
  Country: None (occurrence: None)
  Receive Date: 20070615
  Receipt Date: 20060811
  Transmission Date: 20071010
  Serious: Yes (Other)
  Sender: FDA-Public Use
  Company Number: 200612173US

PATIENT
  Age: 49 Year
  Sex: Male
  Weight: 84.09 kg

DRUGS (8)
  1. LANTUS [Suspect]
     Indication: INSULIN-REQUIRING TYPE II DIABETES MELLITUS
     Dosage: 20 U QD
     Dates: start: 20051201, end: 20060305
  2. LANTUS [Suspect]
     Indication: INSULIN-REQUIRING TYPE II DIABETES MELLITUS
     Dosage: 25 U QD
     Dates: start: 20060305
  3. LANTUS [Suspect]
     Indication: INSULIN-REQUIRING TYPE II DIABETES MELLITUS
     Dosage: 30 U QD
  4. VENLAFAXINE HCL [Concomitant]
  5. OXYCODONE HYDROCHLORIDE (OXYCONTIN) [Concomitant]
  6. DILANTIN [Concomitant]
  7. ZOCOR [Concomitant]
  8. AMARYL [Concomitant]

REACTIONS (5)
  - BLOOD GLUCOSE DECREASED [None]
  - FATIGUE [None]
  - HYPERGLYCAEMIA [None]
  - VISION BLURRED [None]
  - WEIGHT DECREASED [None]
